FAERS Safety Report 18599149 (Version 3)
Quarter: 2021Q3

REPORT INFORMATION
  Report Type: Spontaneous
  Country: JP (occurrence: JP)
  Receive Date: 20201210
  Receipt Date: 20210719
  Transmission Date: 20211014
  Serious: Yes (Other)
  Sender: FDA-Public Use
  Company Number: NVSJ2020JP013327

PATIENT
  Age: 27 Year
  Sex: Female

DRUGS (16)
  1. AFINITOR [Suspect]
     Active Substance: EVEROLIMUS
     Dosage: 5 MG
     Route: 048
  2. PERAMPANEL [Concomitant]
     Active Substance: PERAMPANEL
     Indication: PRODUCT USED FOR UNKNOWN INDICATION
     Dosage: 10 MG
     Route: 048
  3. ARIPIPRAZOLE. [Concomitant]
     Active Substance: ARIPIPRAZOLE
     Indication: PRODUCT USED FOR UNKNOWN INDICATION
     Dosage: 12 MG
     Route: 048
  4. RAPALIMUS [Concomitant]
     Active Substance: SIROLIMUS
     Indication: ANGIOFIBROMA
     Dosage: UNK
     Route: 003
  5. PERAMPANEL [Concomitant]
     Active Substance: PERAMPANEL
     Dosage: 2 MG
     Route: 048
  6. AFINITOR [Suspect]
     Active Substance: EVEROLIMUS
     Dosage: 7.5 MG
     Route: 048
  7. ETIZOLAM [Concomitant]
     Active Substance: ETIZOLAM
     Indication: PRODUCT USED FOR UNKNOWN INDICATION
     Dosage: 1 MG
     Route: 048
  8. PERAMPANEL [Concomitant]
     Active Substance: PERAMPANEL
     Dosage: 6 MG
     Route: 048
  9. LAMOTRIGINE. [Concomitant]
     Active Substance: LAMOTRIGINE
     Indication: PRODUCT USED FOR UNKNOWN INDICATION
     Dosage: 300 MG
     Route: 048
  10. LACOSAMIDE. [Concomitant]
     Active Substance: LACOSAMIDE
     Indication: PRODUCT USED FOR UNKNOWN INDICATION
     Dosage: 200 MG
     Route: 048
  11. RISPERIDONE. [Concomitant]
     Active Substance: RISPERIDONE
     Indication: PRODUCT USED FOR UNKNOWN INDICATION
     Dosage: 2 MG
     Route: 048
  12. OLANZAPINE. [Concomitant]
     Active Substance: OLANZAPINE
     Indication: PRODUCT USED FOR UNKNOWN INDICATION
     Dosage: 15 MG
     Route: 065
  13. AFINITOR [Suspect]
     Active Substance: EVEROLIMUS
     Indication: TUBEROUS SCLEROSIS COMPLEX
     Dosage: 2.5 MG
     Route: 048
  14. AFINITOR [Suspect]
     Active Substance: EVEROLIMUS
     Dosage: 7.5 MG,AFTER DINNER
     Route: 048
  15. LACOSAMIDE. [Concomitant]
     Active Substance: LACOSAMIDE
     Dosage: 300 MG
     Route: 048
  16. LACOSAMIDE. [Concomitant]
     Active Substance: LACOSAMIDE
     Dosage: 400 MG
     Route: 048

REACTIONS (6)
  - Partial seizures [Unknown]
  - Therapeutic product effect incomplete [Unknown]
  - Drug level increased [Unknown]
  - Generalised tonic-clonic seizure [Unknown]
  - Electroencephalogram abnormal [Recovered/Resolved]
  - Feeling abnormal [Unknown]
